FAERS Safety Report 5245009-3 (Version None)
Quarter: 2007Q1

REPORT INFORMATION
  Report Type: 
  Country: None (occurrence: None)
  Receive Date: 20070223
  Receipt Date: 20070213
  Transmission Date: 20070707
  Serious: Yes (Other)
  Sender: FDA-Public Use
  Company Number: PHBS2006ES06511

PATIENT
  Age: 40 Year
  Sex: Female

DRUGS (1)
  1. CO-DIOVAN FORTE [Suspect]
     Indication: HYPERTENSION
     Dosage: VALS 160 / HCT 25 MG/DAY
     Route: 048

REACTIONS (4)
  - CAESAREAN SECTION [None]
  - DRUG EXPOSURE DURING PREGNANCY [None]
  - HYPERTENSIVE CRISIS [None]
  - NORMAL NEWBORN [None]
